FAERS Safety Report 6547510-9 (Version None)
Quarter: 2010Q1

REPORT INFORMATION
  Report Type: 
  Country: None (occurrence: None)
  Receive Date: 20100122
  Receipt Date: 20100108
  Transmission Date: 20100710
  Serious: Yes (Other)
  Sender: FDA-Public Use
  Company Number: US-JNJFOC-20100103920

PATIENT
  Sex: Female
  Weight: 50.35 kg

DRUGS (7)
  1. PARAFON FORTE [Suspect]
     Indication: PAIN
     Route: 048
  2. PARAFON FORTE [Suspect]
     Route: 048
  3. PARAFON FORTE [Suspect]
     Route: 048
  4. CHLORZOXAZONE [Suspect]
     Indication: PAIN
     Route: 048
  5. CHLORZOXAZONE [Suspect]
     Route: 048
  6. MODURETIC 5-50 [Concomitant]
     Indication: FIBROMYALGIA
  7. BENTYL [Concomitant]
     Indication: IRRITABLE BOWEL SYNDROME
     Route: 048

REACTIONS (8)
  - BREAST CANCER IN SITU [None]
  - BREAST INFECTION [None]
  - HEADACHE [None]
  - IMPLANT SITE REACTION [None]
  - LARYNGITIS [None]
  - MENINGIOMA [None]
  - MIGRAINE [None]
  - POST PROCEDURAL INFECTION [None]
